FAERS Safety Report 7874634-6 (Version None)
Quarter: 2011Q4

REPORT INFORMATION
  Report Type: 
  Country: None (occurrence: None)
  Receive Date: 20111031
  Receipt Date: 20111026
  Transmission Date: 20120403
  Serious: Yes (Other)
  Sender: FDA-Public Use
  Company Number: NL-PFIZER INC-2011263566

PATIENT
  Sex: Female

DRUGS (3)
  1. PREDNISONE [Concomitant]
     Dosage: UNK
  2. CELEBREX [Suspect]
     Indication: ARTHRITIS
     Dosage: UNK
  3. EPINEPHRINE [Concomitant]
     Indication: ASTHMA
     Dosage: UNK

REACTIONS (1)
  - DYSGRAPHIA [None]
